FAERS Safety Report 7010945-4 (Version None)
Quarter: 2010Q3

REPORT INFORMATION
  Report Type: 
  Country: None (occurrence: None)
  Receive Date: 20100922
  Receipt Date: 20100922
  Transmission Date: 20110219
  Serious: Yes (Hospitalization, Disabling, Other)
  Sender: FDA-Public Use
  Company Number: None

PATIENT
  Age: 57 Year
  Sex: Female
  Weight: 79.3795 kg

DRUGS (1)
  1. NOVO-ALENDRONATE 70MG NOVOPHARM [Suspect]
     Indication: OSTEOPOROSIS
     Dosage: 70 MGS ONCE PER WEEK PO
     Route: 048
     Dates: start: 19960901, end: 20100918

REACTIONS (2)
  - FEMUR FRACTURE [None]
  - FOOT FRACTURE [None]
